FAERS Safety Report 25882800 (Version 1)
Quarter: 2025Q4

REPORT INFORMATION
  Report Type: Report from Study
  Country: JP (occurrence: JP)
  Receive Date: 20251006
  Receipt Date: 20251006
  Transmission Date: 20260117
  Serious: Yes (Death)
  Sender: ROCHE
  Company Number: JP-ROCHE-10000397861

PATIENT

DRUGS (2)
  1. CELLCEPT [Suspect]
     Active Substance: MYCOPHENOLATE MOFETIL
     Indication: Prophylaxis against graft versus host disease
     Route: 065
  2. TACROLIMUS [Suspect]
     Active Substance: TACROLIMUS
     Indication: Prophylaxis against graft versus host disease
     Route: 065

REACTIONS (4)
  - Bacterial infection [Fatal]
  - Fungal infection [Fatal]
  - Haemorrhage [Fatal]
  - Idiopathic pneumonia syndrome [Fatal]
